FAERS Safety Report 9790243 (Version 1)
Quarter: 2013Q4

REPORT INFORMATION
  Report Type: Report from Study
  Country: US (occurrence: US)
  Receive Date: 20131231
  Receipt Date: 20131231
  Transmission Date: 20140711
  Serious: Yes (Other)
  Sender: FDA-Public Use
  Company Number: US-ALEXION PHARMACEUTICALS INC.-A201304413

PATIENT
  Sex: 0

DRUGS (1)
  1. SOLIRIS [Suspect]
     Indication: PAROXYSMAL NOCTURNAL HAEMOGLOBINURIA
     Dosage: UNK
     Route: 042

REACTIONS (6)
  - Platelet count decreased [Unknown]
  - Unevaluable event [Unknown]
  - Dysphagia [Unknown]
  - Iron overload [Unknown]
  - Eating disorder [Unknown]
  - Fluid intake reduced [Unknown]
